FAERS Safety Report 8806927 (Version 2)
Quarter: 2012Q4

REPORT INFORMATION
  Report Type: 
  Country: US (occurrence: US)
  Receive Date: 20120925
  Receipt Date: 20121012
  Transmission Date: 20130627
  Serious: Yes (Death, Hospitalization, Other)
  Sender: FDA-Public Use
  Company Number: US-BRISTOL-MYERS SQUIBB COMPANY-16798654

PATIENT
  Age: 83 Year
  Sex: Female

DRUGS (11)
  1. SPRYCEL [Suspect]
     Indication: CHRONIC MYELOID LEUKAEMIA
     Dosage: 40mg,Bid:01Sep06
20mgBID:26Jan07.Inter-02Jan08.restart:29May09
     Route: 048
     Dates: start: 200607
  2. BENICAR [Concomitant]
     Dosage: 40mg/12.5mg
  3. HUMULIN INSULIN [Concomitant]
     Dosage: 70/30
  4. LOTREL [Concomitant]
  5. NAMENDA [Concomitant]
  6. PREMARIN [Concomitant]
     Route: 048
  7. HUMULIN 70/30 [Concomitant]
     Dosage: Inj,1df=1 unit(s),40 at breakfast,12 at noon,12 at 8pm
     Route: 058
  8. PREMARIN [Concomitant]
     Dosage: tabs,1 QHS as directed
     Route: 048
  9. BENICAR HCT [Concomitant]
     Dosage: 1df=40-12.5mg,tabs
     Route: 048
  10. LOTREL [Concomitant]
     Route: 048
  11. NAMENDA [Concomitant]
     Dosage: tabs
     Route: 048

REACTIONS (7)
  - Death [Fatal]
  - Pneumonia aspiration [Unknown]
  - Cardiac failure congestive [Unknown]
  - Pancytopenia [Unknown]
  - Pleural effusion [Recovered/Resolved]
  - Liver function test abnormal [Recovered/Resolved]
  - Adverse event [Unknown]
